APPROVED DRUG PRODUCT: INDOCIN
Active Ingredient: INDOMETHACIN
Strength: 50MG **Federal Register determination that product was not discontinued or withdrawn for safety or effectiveness reasons**
Dosage Form/Route: CAPSULE;ORAL
Application: N016059 | Product #002
Applicant: ZYLA LIFE SCIENCES US LLC
Approved: Approved Prior to Jan 1, 1982 | RLD: Yes | RS: No | Type: DISCN